FAERS Safety Report 9055290 (Version 1)
Quarter: 2013Q1

REPORT INFORMATION
  Report Type: Spontaneous
  Country: BR (occurrence: BR)
  Receive Date: 20130206
  Receipt Date: 20130206
  Transmission Date: 20140127
  Serious: Yes (Other)
  Sender: FDA-Public Use
  Company Number: BR-ASTRAZENECA-2013SE07031

PATIENT
  Age: 3402 Week
  Sex: Female

DRUGS (1)
  1. ATACAND HCT [Suspect]
     Indication: BLOOD PRESSURE ABNORMAL
     Dosage: 16/ 12.5 MG, UNKNOWN FREQUENCY
     Route: 048
     Dates: start: 201208, end: 20130118

REACTIONS (3)
  - Hypertension [Not Recovered/Not Resolved]
  - Headache [Unknown]
  - Drug ineffective [Unknown]
